FAERS Safety Report 7148803-7 (Version None)
Quarter: 2010Q4

REPORT INFORMATION
  Report Type: 
  Country: None (occurrence: None)
  Receive Date: 20101209
  Receipt Date: 20101129
  Transmission Date: 20110411
  Serious: Yes (Hospitalization, Other)
  Sender: FDA-Public Use
  Company Number: PHHY2010CN81318

PATIENT
  Sex: Male
  Weight: 57 kg

DRUGS (3)
  1. SEBIVO [Suspect]
     Indication: HEPATITIS B
     Dosage: 600 MG, QD
     Route: 048
     Dates: start: 20091101, end: 20101114
  2. ADEFOVIR DIPIVOXIL KIT [Concomitant]
  3. LAMIVUDINE [Concomitant]

REACTIONS (9)
  - BLOOD CREATINE PHOSPHOKINASE INCREASED [None]
  - BLOOD CREATINE PHOSPHOKINASE MB INCREASED [None]
  - BLOOD GLUCOSE DECREASED [None]
  - BLOOD LACTATE DEHYDROGENASE INCREASED [None]
  - HEPATITIS B DNA INCREASED [None]
  - MYALGIA [None]
  - MYALGIA INTERCOSTAL [None]
  - MYOGLOBIN BLOOD INCREASED [None]
  - OEDEMA PERIPHERAL [None]
